FAERS Safety Report 19208631 (Version 1)
Quarter: 2021Q2

REPORT INFORMATION
  Report Type: Spontaneous
  Country: GB (occurrence: GB)
  Receive Date: 20210503
  Receipt Date: 20210503
  Transmission Date: 20210717
  Serious: Yes (Other)
  Sender: FDA-Public Use
  Company Number: GB-NOVOPROD-806353

PATIENT
  Age: 52 Year
  Sex: Female
  Weight: 66.67 kg

DRUGS (2)
  1. SAXENDA [Suspect]
     Active Substance: LIRAGLUTIDE
     Dosage: 1.2 MG
     Route: 051
     Dates: end: 20200331
  2. SAXENDA [Suspect]
     Active Substance: LIRAGLUTIDE
     Indication: WEIGHT CONTROL
     Dosage: 0.6 MG
     Route: 051
     Dates: start: 20200316

REACTIONS (5)
  - Injection site bruising [Recovering/Resolving]
  - Back pain [Recovering/Resolving]
  - Therapy change [Unknown]
  - Renal pain [Recovering/Resolving]
  - Dysgeusia [Unknown]

NARRATIVE: CASE EVENT DATE: 20210323
